FAERS Safety Report 11263494 (Version 1)
Quarter: 2015Q3

REPORT INFORMATION
  Report Type: Other
  Country: KR (occurrence: KR)
  Receive Date: 20150713
  Receipt Date: 20150713
  Transmission Date: 20151125
  Serious: No
  Sender: FDA-Public Use
  Company Number: KR-LUPIN PHARMACEUTICALS INC.-2015-01657

PATIENT
  Age: 42 Year
  Sex: Male

DRUGS (1)
  1. LAMOTRIGINE. [Suspect]
     Active Substance: LAMOTRIGINE
     Indication: EPILEPSY
     Dosage: 6.3 MG/KG
     Route: 065

REACTIONS (2)
  - Rash [Unknown]
  - Urticaria [Unknown]
